FAERS Safety Report 19142382 (Version 1)
Quarter: 2021Q2

REPORT INFORMATION
  Report Type: Spontaneous
  Country: US (occurrence: US)
  Receive Date: 20210415
  Receipt Date: 20210415
  Transmission Date: 20210717
  Serious: Yes (Hospitalization)
  Sender: FDA-Public Use
  Company Number: US-TEVA-2021-US-1900124

PATIENT
  Age: 66 Year
  Sex: Male

DRUGS (2)
  1. BICALUTAMIDE. [Suspect]
     Active Substance: BICALUTAMIDE
     Indication: ANTIANDROGEN THERAPY
     Dosage: 50 MILLIGRAM DAILY; ANDROGEN BLOCKADE THERAPY (ADT)
     Route: 065
     Dates: start: 20171011, end: 20180312
  2. LEUPROLIDE [Suspect]
     Active Substance: LEUPROLIDE
     Indication: ANTIANDROGEN THERAPY
     Dosage: ANDROGEN BLOCKADE THERAPY (ADT)
     Route: 065
     Dates: start: 20171011, end: 20180312

REACTIONS (3)
  - Weight increased [Unknown]
  - Pneumonitis [Recovering/Resolving]
  - Muscular weakness [Unknown]
